FAERS Safety Report 7320589-2 (Version None)
Quarter: 2011Q1

REPORT INFORMATION
  Report Type: 
  Country: None (occurrence: None)
  Receive Date: 20110228
  Receipt Date: 20110218
  Transmission Date: 20110831
  Serious: Yes (Death, Hospitalization, Other)
  Sender: FDA-Public Use
  Company Number: GB-ROCHE-680914

PATIENT
  Sex: Male
  Weight: 88.8 kg

DRUGS (26)
  1. TOCILIZUMAB [Suspect]
     Indication: RHEUMATOID ARTHRITIS
     Dosage: FORM REPORTED AS INFUSION SOLUTION
     Route: 042
     Dates: start: 20060101
  2. TOCILIZUMAB [Suspect]
     Dosage: LAST DOSE PRIOR TO SAE: 26 JUNE 2009. PERMANENTLY DISCOTINUED.
     Route: 042
     Dates: end: 20100101
  3. OXYCONTIN [Concomitant]
  4. PREDNISOLONE [Concomitant]
     Dates: start: 20031024
  5. PREDNISOLONE [Concomitant]
     Dates: start: 20061222
  6. CALCICHEW [Concomitant]
     Dates: start: 19991203
  7. PLACEBO [Suspect]
     Indication: RHEUMATOID ARTHRITIS
     Dosage: THE PATIENT WAS PREVIOUSLY ENROLLED IN WA18062
     Route: 042
  8. FOLIC ACID [Concomitant]
     Dosage: 1 TABLET DAILY
  9. ASPIRIN [Concomitant]
     Dates: start: 20080822
  10. FOLIC ACID [Concomitant]
     Dates: start: 20070611
  11. PREDNISOLONE [Concomitant]
  12. NEXIUM [Concomitant]
     Dosage: ONLY AM DAILY
  13. OXYNORM [Concomitant]
  14. METHOTREXATE [Suspect]
     Indication: RHEUMATOID ARTHRITIS
     Dosage: THE PATIENT WAS PREVIOUSLY ENROLLED IN WA18062
     Route: 065
  15. FOLIC ACID [Concomitant]
     Dates: start: 19990101
  16. CALCICHEW [Concomitant]
     Dates: start: 20040116
  17. SIMVASTATIN [Concomitant]
     Dates: start: 20080822
  18. NEXIUM [Concomitant]
     Dates: start: 20050526
  19. TRAMADOL [Concomitant]
  20. TOCILIZUMAB [Suspect]
     Dosage: DRUG TEMPORIRILY INTERRUPTED IN MAY 2009, FORM REPORTED AS INFUSION SOLUTION
     Route: 042
     Dates: start: 20060621, end: 20090501
  21. CITALOPRAM HYDROBROMIDE [Concomitant]
  22. PREDNISOLONE [Concomitant]
  23. PARACETAMOL [Concomitant]
     Dates: start: 20051208
  24. CITALOPRAM HYDROBROMIDE [Concomitant]
     Dates: start: 20061024
  25. CYCLIZINE [Concomitant]
  26. MOVIPREP [Concomitant]
     Dosage: 1 SACHET TWO TIMES DAILY

REACTIONS (2)
  - LUNG SQUAMOUS CELL CARCINOMA STAGE I [None]
  - GASTROINTESTINAL HAEMORRHAGE [None]
